FAERS Safety Report 6223294-9 (Version None)
Quarter: 2009Q2

REPORT INFORMATION
  Report Type: 
  Country: None (occurrence: None)
  Receive Date: 20090611
  Receipt Date: 20090601
  Transmission Date: 20091009
  Serious: Yes (Hospitalization)
  Sender: FDA-Public Use
  Company Number: US-ELI_LILLY_AND_COMPANY-US200906000244

PATIENT
  Sex: Female

DRUGS (6)
  1. BYETTA [Suspect]
     Indication: TYPE 2 DIABETES MELLITUS
     Dosage: 10 UG, 2/D
     Route: 058
     Dates: start: 20060101, end: 20070101
  2. BYETTA [Suspect]
     Dosage: 10 UG, 2/D
     Route: 058
     Dates: start: 20080101
  3. LANTUS [Concomitant]
     Indication: TYPE 2 DIABETES MELLITUS
     Dosage: 74 U, EACH EVENING
     Dates: start: 20000101
  4. GLIPIZIDE W/METFORMIN [Concomitant]
     Indication: TYPE 2 DIABETES MELLITUS
     Dosage: UNK, OTHER
  5. FISH OIL [Concomitant]
     Dosage: UNK, UNKNOWN
  6. LOVAZA [Concomitant]
     Dosage: UNK, UNKNOWN

REACTIONS (10)
  - BLOOD GLUCOSE ABNORMAL [None]
  - COLECTOMY [None]
  - DRUG INEFFECTIVE [None]
  - GLYCOSYLATED HAEMOGLOBIN INCREASED [None]
  - INJECTION SITE REACTION [None]
  - INTESTINAL FUNCTIONAL DISORDER [None]
  - IRRITABLE BOWEL SYNDROME [None]
  - STRESS [None]
  - UMBILICAL HERNIA [None]
  - WEIGHT DECREASED [None]
